FAERS Safety Report 5780146-6 (Version None)
Quarter: 2008Q2

REPORT INFORMATION
  Report Type: 
  Country: None (occurrence: None)
  Receive Date: 20080620
  Receipt Date: 20071120
  Transmission Date: 20081010
  Serious: Yes (Other)
  Sender: FDA-Public Use
  Company Number: US-BAYER-US-2007-042868

PATIENT
  Age: 72 Year
  Sex: Female

DRUGS (2)
  1. ULTRAVIST 300 [Suspect]
     Indication: COMPUTERISED TOMOGRAM
     Dosage: TOTAL DAILY DOSE: 135 ML  UNIT DOSE: 150 ML
     Route: 042
     Dates: start: 20071016, end: 20071016
  2. READI-CAT [Concomitant]
     Indication: COMPUTERISED TOMOGRAM
     Route: 048
     Dates: start: 20071016, end: 20071016

REACTIONS (3)
  - CHEST DISCOMFORT [None]
  - HEADACHE [None]
  - NECK PAIN [None]
